FAERS Safety Report 13888674 (Version 6)
Quarter: 2018Q2

REPORT INFORMATION
  Report Type: Spontaneous
  Country: DE (occurrence: DE)
  Receive Date: 20170822
  Receipt Date: 20180629
  Transmission Date: 20180711
  Serious: Yes (Life-Threatening, Hospitalization, Other)
  Sender: FDA-Public Use
  Company Number: DE-AUROBINDO-AUR-APL-2017-39145

PATIENT
  Age: 25 Year
  Sex: Female
  Weight: 65 kg

DRUGS (3)
  1. ALCOHOL. [Suspect]
     Active Substance: ALCOHOL
     Indication: PRODUCT USED FOR UNKNOWN INDICATION
     Dosage: UNK
     Route: 048
  2. QUETIAPINE FILM-COATED TABLET [Suspect]
     Active Substance: QUETIAPINE
     Indication: PRODUCT USED FOR UNKNOWN INDICATION
     Dosage: 10 G, 150 MG/KG
     Route: 065
  3. AMITRIPTYLINE [Suspect]
     Active Substance: AMITRIPTYLINE
     Indication: BORDERLINE PERSONALITY DISORDER
     Dosage: 5.5 G, 85 MG/KG

REACTIONS (17)
  - Cardiogenic shock [Recovering/Resolving]
  - Alcohol poisoning [Recovering/Resolving]
  - Coma [Recovered/Resolved]
  - Myoclonus [Recovered/Resolved]
  - Hyperthermia [Recovered/Resolved]
  - Arrhythmia [Recovering/Resolving]
  - Shock [Recovering/Resolving]
  - Anticholinergic syndrome [Recovering/Resolving]
  - Toxicity to various agents [Recovered/Resolved]
  - Suicidal ideation [Recovered/Resolved]
  - Haemodynamic instability [Recovered/Resolved]
  - Electrocardiogram QT prolonged [Recovered/Resolved]
  - Blood lactic acid increased [Recovered/Resolved]
  - Sinus tachycardia [Recovered/Resolved]
  - Overdose [Recovering/Resolving]
  - Bradypnoea [Recovered/Resolved]
  - Ventricular tachycardia [Recovering/Resolving]
